FAERS Safety Report 5277047-9 (Version None)
Quarter: 2007Q1

REPORT INFORMATION
  Report Type: 
  Country: None (occurrence: None)
  Receive Date: 20070327
  Receipt Date: 20070223
  Transmission Date: 20070707
  Serious: No
  Sender: FDA-Public Use
  Company Number: US-BRISTOL-MYERS SQUIBB COMPANY-13691605

PATIENT
  Age: 61 Year
  Sex: Female
  Weight: 77 kg

DRUGS (4)
  1. ORENCIA [Suspect]
     Indication: RHEUMATOID ARTHRITIS
     Dates: start: 20070201
  2. PLAQUENIL [Concomitant]
  3. LORAZEPAM [Concomitant]
  4. ACIPHEX [Concomitant]

REACTIONS (2)
  - ASTHENIA [None]
  - FURUNCLE [None]
